FAERS Safety Report 8102267-5 (Version None)
Quarter: 2012Q1

REPORT INFORMATION
  Report Type: 
  Country: None (occurrence: None)
  Receive Date: 20120201
  Receipt Date: 20120127
  Transmission Date: 20120608
  Serious: No
  Sender: FDA-Public Use
  Company Number: US-PFIZER INC-2012023374

PATIENT
  Sex: Female
  Weight: 113 kg

DRUGS (6)
  1. LISINOPRIL AND HYDROCHLOROTHIAZIDE [Concomitant]
     Indication: BLOOD PRESSURE ABNORMAL
     Dosage: 12/25  MG, DAILY
  2. AMBIEN [Concomitant]
     Indication: SLEEP DISORDER
     Dosage: 10 MG, AS NEEDED
  3. ADVIL PM [Suspect]
     Indication: MYALGIA
     Dosage: UNK
     Route: 048
     Dates: start: 20120127
  4. NUVARING [Concomitant]
     Indication: CONTRACEPTION
     Dosage: UNK
     Route: 067
  5. ADVIL PM [Suspect]
     Indication: RESTLESSNESS
  6. ADVIL PM [Suspect]
     Indication: SLEEP DISORDER

REACTIONS (2)
  - DRY MOUTH [None]
  - INCORRECT DOSE ADMINISTERED [None]
